FAERS Safety Report 4757816-1 (Version None)
Quarter: 2005Q3

REPORT INFORMATION
  Report Type: 
  Country: None (occurrence: None)
  Receive Date: 20050830
  Receipt Date: 20050815
  Transmission Date: 20060218
  Serious: Yes (Hospitalization)
  Sender: FDA-Public Use
  Company Number: 32292

PATIENT
  Age: 75 Year
  Sex: Male

DRUGS (1)
  1. (AZOPT) BRINZOLAMIDE 1% SUSPENSION [Suspect]
     Dosage: OPHT
     Route: 047

REACTIONS (1)
  - PANCREATITIS ACUTE [None]
